FAERS Safety Report 9891192 (Version 2)
Quarter: 2014Q1

REPORT INFORMATION
  Report Type: Report from Study
  Country: JP (occurrence: JP)
  Receive Date: 20140212
  Receipt Date: 20140212
  Transmission Date: 20141002
  Serious: Yes (Death)
  Sender: FDA-Public Use
  Company Number: JP-SA-THYM-1002920

PATIENT
  Sex: Female
  Weight: 27 kg

DRUGS (9)
  1. THYMOGLOBULIN [Suspect]
     Indication: BONE MARROW CONDITIONING REGIMEN
     Dosage: 60 MG, QD
     Route: 042
     Dates: start: 20110528, end: 20110528
  2. FLUDARABINE PHOSPHATE [Concomitant]
     Indication: ACUTE LYMPHOCYTIC LEUKAEMIA
     Dosage: UNK
     Dates: start: 20110525, end: 20110530
  3. MELPHALAN [Concomitant]
     Indication: ACUTE LYMPHOCYTIC LEUKAEMIA
     Dosage: UNK
     Dates: start: 20110529, end: 20110530
  4. ETOPOSIDE [Concomitant]
     Indication: ACUTE LYMPHOCYTIC LEUKAEMIA
     Dosage: UNK
     Dates: start: 20110529, end: 20110530
  5. METHYLPREDNISOLONE SODIUM SUCCINATE [Concomitant]
     Indication: PREMEDICATION
     Dosage: UNK
     Dates: start: 20110528, end: 20110530
  6. ITRACONAZOLE [Concomitant]
     Indication: ANTIFUNGAL PROPHYLAXIS
     Dosage: UNK
     Dates: start: 20110526, end: 20110622
  7. ACICLOVIR [Concomitant]
     Indication: PROPHYLAXIS
     Dosage: UNK
     Dates: start: 20110526, end: 20110622
  8. CICLOSPORIN [Concomitant]
     Indication: PROPHYLAXIS AGAINST GRAFT VERSUS HOST DISEASE
     Dosage: UNK
     Dates: start: 20110531, end: 20110921
  9. PREDNISOLONE [Concomitant]
     Indication: PROPHYLAXIS AGAINST GRAFT VERSUS HOST DISEASE
     Dosage: UNK
     Dates: start: 20110531, end: 20110921

REACTIONS (2)
  - Acute lymphocytic leukaemia recurrent [Fatal]
  - Neutropenia [Recovered/Resolved]
